FAERS Safety Report 6633080-3 (Version None)
Quarter: 2010Q1

REPORT INFORMATION
  Report Type: 
  Country: None (occurrence: None)
  Receive Date: 20100312
  Receipt Date: 20100301
  Transmission Date: 20100710
  Serious: Yes (Hospitalization, Other)
  Sender: FDA-Public Use
  Company Number: PHEH2008US02886

PATIENT
  Sex: Female

DRUGS (5)
  1. ZOMETA [Suspect]
     Dosage: MONTHLY
     Dates: end: 20070101
  2. GEMZAR [Concomitant]
  3. AROMASIN [Concomitant]
  4. FEMARA [Concomitant]
  5. 5-FU [Concomitant]

REACTIONS (19)
  - ABSCESS JAW [None]
  - ACTIVITIES OF DAILY LIVING IMPAIRED [None]
  - ANAEMIA [None]
  - ANHEDONIA [None]
  - ANXIETY [None]
  - BONE DISORDER [None]
  - BREAST CANCER [None]
  - BREAST HAEMORRHAGE [None]
  - FAILURE TO THRIVE [None]
  - HYPOAESTHESIA FACIAL [None]
  - METASTASES TO SKIN [None]
  - MULTIPLE INJURIES [None]
  - OSTEONECROSIS [None]
  - PAIN [None]
  - PAIN IN JAW [None]
  - PARAESTHESIA ORAL [None]
  - PERFORMANCE STATUS DECREASED [None]
  - PURULENT DISCHARGE [None]
  - TUMOUR HAEMORRHAGE [None]
